FAERS Safety Report 4475069-9 (Version None)
Quarter: 2004Q4

REPORT INFORMATION
  Report Type: 
  Country: None (occurrence: None)
  Receive Date: 20041015
  Receipt Date: 20041004
  Transmission Date: 20050328
  Serious: Yes (Life-Threatening, Hospitalization)
  Sender: FDA-Public Use
  Company Number: FR-JNJFOC-20040906309

PATIENT
  Age: 68 Year
  Sex: Male
  Weight: 65 kg

DRUGS (12)
  1. REMICADE [Suspect]
     Indication: PSORIATIC ARTHROPATHY
     Route: 042
  2. BIPROFENID [Suspect]
     Indication: DRUG USE FOR UNKNOWN INDICATION
  3. MOPRAL [Concomitant]
  4. PRINZIDE [Concomitant]
  5. PRINZIDE [Concomitant]
  6. DIAMICRON [Concomitant]
  7. SKENAN [Concomitant]
  8. MORPHINE SULFATE [Concomitant]
  9. DUPHALAC [Concomitant]
  10. COLCHICINE [Concomitant]
     Dosage: 1/2 IN 1 DAY
  11. VALACYCLOVIR HCL [Concomitant]
  12. LOVENOX 0.4 [Concomitant]

REACTIONS (8)
  - GASTROINTESTINAL PERFORATION [None]
  - GENERAL PHYSICAL HEALTH DETERIORATION [None]
  - HYPOTENSION [None]
  - LEUKOCYTOSIS [None]
  - PERITONITIS [None]
  - PNEUMOPERITONEUM [None]
  - RENAL FAILURE ACUTE [None]
  - TACHYCARDIA [None]
